FAERS Safety Report 5738239-5 (Version None)
Quarter: 2008Q2

REPORT INFORMATION
  Report Type: 
  Country: None (occurrence: None)
  Receive Date: 20080514
  Receipt Date: 20080506
  Transmission Date: 20081010
  Serious: Yes (Other)
  Sender: FDA-Public Use
  Company Number: CA-BOEHRINGER INGELHEIM GMBH, GERMANY-2008-DE-02686DE

PATIENT
  Age: 81 Year
  Sex: Female

DRUGS (11)
  1. MOBIC [Suspect]
     Route: 048
  2. NEOCITRAN COLDS + FLU NON BI DRUG [Suspect]
     Indication: COUGH
     Route: 048
     Dates: start: 20080410, end: 20080412
  3. ATACAND [Suspect]
     Route: 048
  4. SYNTHROID [Suspect]
     Route: 048
  5. PARIET NON BI DRUG [Suspect]
     Route: 048
  6. SERTRALINE NON BI DRUG [Suspect]
     Route: 048
  7. BROMAZEPAM NON BI DRUG [Suspect]
     Route: 048
  8. HYDROCHLOROTHIAZIDE NON BI DRUG [Suspect]
     Route: 048
  9. PROPRANOLOL NON BI DRUG [Suspect]
     Route: 048
  10. DOCUSATE SODIUM NON BI DRUG [Suspect]
     Route: 048
  11. FERROUS GLUCONATE NON BI DRUG [Suspect]
     Route: 048

REACTIONS (3)
  - DRUG INTERACTION [None]
  - FALL [None]
  - FEELING ABNORMAL [None]
